FAERS Safety Report 24035326 (Version 4)
Quarter: 2024Q4

REPORT INFORMATION
  Report Type: Spontaneous
  Country: US (occurrence: US)
  Receive Date: 20240701
  Receipt Date: 20241007
  Transmission Date: 20250114
  Serious: Yes (Other)
  Sender: PFIZER
  Company Number: US-PFIZER INC-202400200835

PATIENT
  Age: 53 Year
  Sex: Male
  Weight: 130.18 kg

DRUGS (3)
  1. INLYTA [Suspect]
     Active Substance: AXITINIB
     Indication: Renal cancer stage IV
     Dosage: 5 MG TAKE 1 TABLET BY MOUTH EVERY 12 HOURS
     Route: 048
  2. INLYTA [Suspect]
     Active Substance: AXITINIB
     Dosage: 5MG TABLET ONE TIME A DAY.
     Route: 048
  3. IRON [Concomitant]
     Active Substance: IRON
     Dosage: UNK

REACTIONS (3)
  - Diarrhoea [Not Recovered/Not Resolved]
  - Limb discomfort [Unknown]
  - Off label use [Unknown]
